FAERS Safety Report 21994250 (Version 7)
Quarter: 2023Q2

REPORT INFORMATION
  Report Type: Report from Study
  Country: JP (occurrence: None)
  Receive Date: 20230215
  Receipt Date: 20230623
  Transmission Date: 20230721
  Serious: Yes (Hospitalization)
  Sender: FDA-Public Use
  Company Number: JP-Eisai Medical Research-EC-2023-134013

PATIENT
  Age: 68 Year
  Sex: Male
  Weight: 56.1 kg

DRUGS (18)
  1. LENVATINIB [Suspect]
     Active Substance: LENVATINIB
     Indication: Clear cell renal cell carcinoma
     Dosage: STARTING DOSE AT 20 MG, FLUCTUATED DOSAGE
     Route: 048
     Dates: start: 20220601, end: 20230208
  2. PEMBROLIZUMAB [Suspect]
     Active Substance: PEMBROLIZUMAB
     Indication: Clear cell renal cell carcinoma
     Route: 041
     Dates: start: 20220601, end: 20221228
  3. KETOPROFEN [Concomitant]
     Active Substance: KETOPROFEN
     Dates: start: 20220531
  4. NIFEDIPINE [Concomitant]
     Active Substance: NIFEDIPINE
     Dates: start: 20220602
  5. SUVOREXANT [Concomitant]
     Active Substance: SUVOREXANT
     Dates: start: 20220614
  6. LUBIPROSTONE [Concomitant]
     Active Substance: LUBIPROSTONE
     Dates: start: 20220623
  7. MAGNESIUM OXIDE [Concomitant]
     Active Substance: MAGNESIUM OXIDE
     Dates: start: 20220609
  8. TENELIGLIPTIN HYDROCHLORIDE HYDRATE [Concomitant]
     Dates: start: 20220610
  9. ESOMEPRAZOLE MAGNESIUM [Concomitant]
     Active Substance: ESOMEPRAZOLE MAGNESIUM
     Dates: start: 20220713, end: 20230207
  10. KALLIDINOGENASE [Concomitant]
     Active Substance: KALLIDINOGENASE
     Dates: start: 20220717
  11. AMLODIPINE BESYLATE [Concomitant]
     Active Substance: AMLODIPINE BESYLATE
     Dates: start: 20220720
  12. ACETAMINOPHEN [Concomitant]
     Active Substance: ACETAMINOPHEN
     Dates: start: 20220806
  13. HEMOPORISON [Concomitant]
     Dates: start: 20220831
  14. LEVOTHYROXINE SODIUM [Concomitant]
     Active Substance: LEVOTHYROXINE SODIUM
     Dates: start: 20221206
  15. MIROGABALIN BESYLATE [Concomitant]
     Active Substance: MIROGABALIN BESYLATE
     Dates: start: 20230123
  16. DULOXETINE HYDROCHLORIDE [Concomitant]
     Active Substance: DULOXETINE HYDROCHLORIDE
     Dates: start: 20230123
  17. BIO-THREE [Concomitant]
     Active Substance: HERBALS
     Dates: start: 20220929
  18. AZILSARTAN KAMEDOXOMIL [Concomitant]
     Active Substance: AZILSARTAN KAMEDOXOMIL
     Dates: start: 20221228

REACTIONS (1)
  - Pulmonary toxicity [Recovered/Resolved]

NARRATIVE: CASE EVENT DATE: 20230208
